FAERS Safety Report 8243928-7 (Version None)
Quarter: 2012Q1

REPORT INFORMATION
  Report Type: 
  Country: None (occurrence: None)
  Receive Date: 20120329
  Receipt Date: 20110715
  Transmission Date: 20120608
  Serious: No
  Sender: FDA-Public Use
  Company Number: US-MYLANLABS-2011S1014888

PATIENT
  Age: 64 Year
  Sex: Female

DRUGS (5)
  1. ACTOS [Concomitant]
  2. AVANDIA [Concomitant]
  3. LIPITOR [Concomitant]
  4. ESTRADIOL [Suspect]
     Indication: HORMONE REPLACEMENT THERAPY
     Dosage: CHANGED QWK
     Route: 062
     Dates: start: 20100101, end: 20110101
  5. METFORMIN HCL [Concomitant]

REACTIONS (4)
  - APPLICATION SITE HYPERSENSITIVITY [None]
  - APPLICATION SITE IRRITATION [None]
  - APPLICATION SITE PAIN [None]
  - APPLICATION SITE ERYTHEMA [None]
